FAERS Safety Report 15672844 (Version 5)
Quarter: 2019Q1

REPORT INFORMATION
  Report Type: Report from Study
  Country: US (occurrence: US)
  Receive Date: 20181129
  Receipt Date: 20190318
  Transmission Date: 20190417
  Serious: Yes (Other)
  Sender: FDA-Public Use
  Company Number: US-TESARO-US-2017TSO01481

PATIENT
  Sex: Female

DRUGS (3)
  1. ZEJULA [Suspect]
     Active Substance: NIRAPARIB
     Dosage: 200 MG, QD
     Route: 048
     Dates: start: 201708
  2. ZEJULA [Suspect]
     Active Substance: NIRAPARIB
     Indication: OVARIAN CANCER
     Dosage: 300 MG, QD
     Route: 048
     Dates: start: 20170626, end: 20170719
  3. ZEJULA [Suspect]
     Active Substance: NIRAPARIB
     Dosage: 200 MG, QD, PM WITH FOOD
     Route: 048
     Dates: start: 201808

REACTIONS (30)
  - Emotional distress [Unknown]
  - Blood glucose increased [Not Recovered/Not Resolved]
  - Rhinorrhoea [Recovered/Resolved]
  - Malaise [Recovered/Resolved]
  - Repetitive speech [Not Recovered/Not Resolved]
  - Hallucination [Unknown]
  - Soliloquy [Unknown]
  - Alopecia [Recovered/Resolved]
  - Hair growth abnormal [Recovered/Resolved]
  - Diarrhoea [Recovered/Resolved]
  - Fall [Recovered/Resolved]
  - Carbohydrate antigen 125 increased [Recovering/Resolving]
  - Decreased appetite [Not Recovered/Not Resolved]
  - Memory impairment [Not Recovered/Not Resolved]
  - Crying [Not Recovered/Not Resolved]
  - Sleep disorder [Not Recovered/Not Resolved]
  - Eastern Cooperative Oncology Group performance status worsened [Unknown]
  - Nasal congestion [Recovered/Resolved]
  - Social problem [Unknown]
  - Vomiting [Recovered/Resolved]
  - Insomnia [Not Recovered/Not Resolved]
  - Cough [Recovered/Resolved]
  - Macular degeneration [Not Recovered/Not Resolved]
  - Blood glucose abnormal [Unknown]
  - Confusional state [Not Recovered/Not Resolved]
  - Oropharyngeal pain [Recovered/Resolved]
  - Anxiety [Not Recovered/Not Resolved]
  - Fatigue [Recovered/Resolved]
  - Asthenia [Not Recovered/Not Resolved]
  - Arthralgia [Recovered/Resolved]
